FAERS Safety Report 10622045 (Version 1)
Quarter: 2014Q4

REPORT INFORMATION
  Report Type: Spontaneous
  Country: US (occurrence: None)
  Receive Date: 20141201
  Receipt Date: 20141201
  Transmission Date: 20150529
  Serious: Yes (Hospitalization)
  Sender: FDA-Public Use
  Company Number: None

PATIENT
  Age: 76 Year
  Sex: Male
  Weight: 102.7 kg

DRUGS (3)
  1. DEXAMETHASONE. [Suspect]
     Active Substance: DEXAMETHASONE
     Dates: end: 20141114
  2. LENALIDOMIDE(CC-5013) [Suspect]
     Active Substance: LENALIDOMIDE
     Dates: end: 20141116
  3. VELCADE [Suspect]
     Active Substance: BORTEZOMIB
     Dates: end: 20141113

REACTIONS (14)
  - Asthenia [None]
  - Upper motor neurone lesion [None]
  - Cerebral atrophy [None]
  - Haemoglobin decreased [None]
  - Blood creatinine increased [None]
  - Vertebral osteophyte [None]
  - Electromyogram abnormal [None]
  - White blood cell count decreased [None]
  - Hyperreflexia [None]
  - Cerebral ventricle dilatation [None]
  - Intervertebral disc space narrowing [None]
  - Chronic sinusitis [None]
  - Decreased vibratory sense [None]
  - Blood calcium decreased [None]

NARRATIVE: CASE EVENT DATE: 20141121
